FAERS Safety Report 5481972-3 (Version None)
Quarter: 2007Q4

REPORT INFORMATION
  Report Type: 
  Country: None (occurrence: None)
  Receive Date: 20071005
  Receipt Date: 20070921
  Transmission Date: 20080405
  Serious: Yes (Hospitalization, Other)
  Sender: FDA-Public Use
  Company Number: 2007S1008452

PATIENT
  Age: 51 Year
  Sex: Male

DRUGS (1)
  1. INDOMETHACIN [Suspect]
     Dosage: 100 MG; ONCE; ORAL
     Route: 048
     Dates: start: 20070830, end: 20070830

REACTIONS (3)
  - AGITATION [None]
  - DRUG SCREEN POSITIVE [None]
  - PSYCHOTIC DISORDER [None]
